FAERS Safety Report 7519398-0 (Version None)
Quarter: 2011Q2

REPORT INFORMATION
  Report Type: 
  Country: None (occurrence: None)
  Receive Date: 20110602
  Receipt Date: 20110520
  Transmission Date: 20111010
  Serious: Yes (Other)
  Sender: FDA-Public Use
  Company Number: JP-CELGENEUS-087-CCAZA-11053504

PATIENT
  Sex: Male

DRUGS (2)
  1. AZACITIDINE [Suspect]
     Route: 058
     Dates: start: 20110101
  2. AZACITIDINE [Suspect]
     Route: 058
     Dates: start: 20110513, end: 20110518

REACTIONS (3)
  - ERYTHEMA [None]
  - HYPOTENSION [None]
  - ARRHYTHMIA [None]
